FAERS Safety Report 8370449-3 (Version None)
Quarter: 2012Q2

REPORT INFORMATION
  Report Type: 
  Country: None (occurrence: None)
  Receive Date: 20120518
  Receipt Date: 20120509
  Transmission Date: 20120825
  Serious: Yes (Hospitalization, Other)
  Sender: FDA-Public Use
  Company Number: US-VERTEX PHARMACEUTICALS INC.-AE-2012-003850

PATIENT
  Sex: Female
  Weight: 63.56 kg

DRUGS (5)
  1. RIBAVIRIN [Concomitant]
     Indication: HEPATITIS C
     Route: 048
     Dates: start: 20120219, end: 20120424
  2. PEGASYS [Concomitant]
     Indication: HEPATITIS C
     Route: 058
     Dates: start: 20120219, end: 20120401
  3. RIBAVIRIN [Concomitant]
     Route: 048
     Dates: start: 20120303
  4. PEGASYS [Concomitant]
     Dates: start: 20120325
  5. INCIVEK [Suspect]
     Indication: HEPATITIS C
     Route: 048
     Dates: start: 20120219, end: 20120424

REACTIONS (7)
  - ASCITES [None]
  - THROMBOCYTOPENIA [None]
  - HAEMATOCRIT DECREASED [None]
  - FATIGUE [None]
  - DIARRHOEA [None]
  - ANAEMIA [None]
  - PYREXIA [None]
